FAERS Safety Report 4795311-4 (Version None)
Quarter: 2005Q4

REPORT INFORMATION
  Report Type: 
  Country: None (occurrence: None)
  Receive Date: 20051012
  Receipt Date: 20050302
  Transmission Date: 20060501
  Serious: Yes (Hospitalization)
  Sender: FDA-Public Use
  Company Number: JP-GLAXOSMITHKLINE-B0373642A

PATIENT
  Age: 41 Year
  Sex: Female

DRUGS (5)
  1. PAXIL [Suspect]
     Indication: DEPRESSION
     Route: 048
  2. MILNACIPRAN HYDROCHLORIDE [Concomitant]
     Indication: DEPRESSION
     Route: 048
  3. HALOPERIDOL [Concomitant]
     Indication: MANIA
     Dosage: 15MG PER DAY
     Route: 065
  4. LITHIUM CARBONATE [Concomitant]
     Indication: MANIA
     Dosage: 600MG PER DAY
     Route: 048
  5. RISPERIDONE [Concomitant]
     Route: 048

REACTIONS (7)
  - ABULIA [None]
  - HYPERHIDROSIS [None]
  - MUSCULOSKELETAL STIFFNESS [None]
  - MYOCLONUS [None]
  - SEROTONIN SYNDROME [None]
  - SUICIDAL IDEATION [None]
  - TREMOR [None]
